FAERS Safety Report 25321881 (Version 4)
Quarter: 2025Q3

REPORT INFORMATION
  Report Type: Spontaneous
  Country: JP (occurrence: JP)
  Receive Date: 20250516
  Receipt Date: 20250708
  Transmission Date: 20251021
  Serious: Yes (Death, Other)
  Sender: Phathom Pharmaceuticals
  Company Number: JP-PHATHOM PHARMACEUTICALS INC.-2025PHT01102

PATIENT
  Age: 88 Year
  Sex: Female
  Weight: 30.5 kg

DRUGS (7)
  1. VONOPRAZAN FUMARATE [Suspect]
     Active Substance: VONOPRAZAN FUMARATE
     Indication: Prophylaxis
     Dosage: 10 MG, 1X/DAY
     Route: 048
     Dates: end: 20250110
  2. SAMSCA [Concomitant]
     Active Substance: TOLVAPTAN
     Dates: start: 20250108, end: 20250110
  3. RISPERIDONE [Concomitant]
     Active Substance: RISPERIDONE
     Dates: end: 20250110
  4. PRAMIPEXOLE DIHYDROCHLORIDE [Concomitant]
     Active Substance: PRAMIPEXOLE DIHYDROCHLORIDE
     Dates: end: 20250110
  5. BISOPROLOL FUMARATE [Concomitant]
     Active Substance: BISOPROLOL FUMARATE
     Dates: end: 20250110
  6. PREDNISOLONE [Concomitant]
     Active Substance: PREDNISOLONE
  7. BISOPROLOL FUMARATE [Concomitant]
     Active Substance: BISOPROLOL FUMARATE

REACTIONS (2)
  - Cardiac failure chronic [Fatal]
  - Marasmus [Unknown]

NARRATIVE: CASE EVENT DATE: 20250122
